FAERS Safety Report 20670562 (Version 3)
Quarter: 2022Q2

REPORT INFORMATION
  Report Type: Spontaneous
  Country: JP (occurrence: JP)
  Receive Date: 20220404
  Receipt Date: 20220520
  Transmission Date: 20220720
  Serious: Yes (Death, Other)
  Sender: FDA-Public Use
  Company Number: JP-GILEAD-2022-0575757

PATIENT
  Age: 83 Year
  Sex: Male

DRUGS (15)
  1. VEKLURY [Suspect]
     Active Substance: REMDESIVIR
     Indication: COVID-19
     Dosage: 200 MG
     Route: 065
     Dates: start: 20210118, end: 20210118
  2. VEKLURY [Suspect]
     Active Substance: REMDESIVIR
     Dosage: 100 MG
     Route: 065
     Dates: start: 20210119, end: 20210122
  3. VEKLURY [Suspect]
     Active Substance: REMDESIVIR
     Dosage: 100 MG
     Route: 065
     Dates: start: 20210124, end: 20210124
  4. VEKLURY [Suspect]
     Active Substance: REMDESIVIR
     Dosage: 100 MG
     Route: 065
     Dates: start: 20210126, end: 20210126
  5. VEKLURY [Suspect]
     Active Substance: REMDESIVIR
     Dosage: 100 MG
     Route: 065
     Dates: start: 20210129, end: 20210129
  6. VEKLURY [Suspect]
     Active Substance: REMDESIVIR
     Dosage: 100 MG
     Route: 065
     Dates: start: 20210201, end: 20210201
  7. DEXAMETHASONE [Concomitant]
     Active Substance: DEXAMETHASONE
     Dosage: 6.6 MG
     Route: 042
     Dates: start: 20210118, end: 20210124
  8. DEXAMETHASONE [Concomitant]
     Active Substance: DEXAMETHASONE
     Dosage: 4.95 MG
     Route: 042
     Dates: start: 20210125, end: 20210126
  9. DEXAMETHASONE [Concomitant]
     Active Substance: DEXAMETHASONE
     Dosage: 3.3 MG
     Route: 042
     Dates: start: 20210127, end: 20210128
  10. DEXAMETHASONE [Concomitant]
     Active Substance: DEXAMETHASONE
     Dosage: 1.65 MG
     Route: 042
     Dates: start: 20210129, end: 20210201
  11. MEROPENEM [Concomitant]
     Active Substance: MEROPENEM
     Indication: Antibiotic therapy
     Route: 042
  12. AZITHROMYCIN [Concomitant]
     Active Substance: AZITHROMYCIN
     Indication: Antibiotic therapy
     Route: 042
  13. HEPARIN SODIUM [Concomitant]
     Active Substance: HEPARIN SODIUM
     Indication: Thrombosis prophylaxis
  14. NAFAMOSTAT MESYLATE [Concomitant]
     Active Substance: NAFAMOSTAT MESYLATE
     Dosage: 250 MG
     Dates: start: 20210118, end: 20210124
  15. SIVELESTAT SODIUM TETRAHYDRATE [Concomitant]
     Dosage: 4.8MG/KG
     Dates: start: 20210118, end: 20210124

REACTIONS (9)
  - Acute hepatic failure [Fatal]
  - Pneumonia [Fatal]
  - Chronic kidney disease [Unknown]
  - Hyperbilirubinaemia [Unknown]
  - Gastrointestinal haemorrhage [Unknown]
  - Cholecystitis acute [Unknown]
  - Gangrene [Unknown]
  - Penile necrosis [Unknown]
  - Cytomegalovirus viraemia [Unknown]
